FAERS Safety Report 15036633 (Version 2)
Quarter: 2018Q2

REPORT INFORMATION
  Report Type: Spontaneous
  Country: US (occurrence: US)
  Receive Date: 20180620
  Receipt Date: 20180628
  Transmission Date: 20180711
  Serious: No
  Sender: FDA-Public Use
  Company Number: US-PFIZER INC-2018244943

PATIENT
  Age: 53 Year
  Sex: Male
  Weight: 73 kg

DRUGS (1)
  1. CHANTIX [Suspect]
     Active Substance: VARENICLINE TARTRATE
     Indication: SMOKING CESSATION THERAPY
     Dosage: UNK (IT WAS 0.5 AND THEN THE ONES HE WAS JUST TAKING WAS 0.1), 2X/DAY
     Route: 048
     Dates: start: 2018, end: 201806

REACTIONS (4)
  - Mood altered [Unknown]
  - Irritability [Unknown]
  - Tremor [Unknown]
  - Anger [Unknown]

NARRATIVE: CASE EVENT DATE: 201806
